FAERS Safety Report 16367707 (Version 1)
Quarter: 2019Q2

REPORT INFORMATION
  Report Type: Spontaneous
  Country: US (occurrence: US)
  Receive Date: 20190422
  Receipt Date: 20190422
  Transmission Date: 20190711
  Serious: Yes (Hospitalization)
  Sender: FDA-Public Use
  Company Number: None

PATIENT
  Age: 81 Year
  Sex: Male
  Weight: 124.74 kg

DRUGS (2)
  1. CARBOPLATIN. [Suspect]
     Active Substance: CARBOPLATIN
     Indication: LUNG ADENOCARCINOMA
     Dates: start: 20181004, end: 20190131
  2. PEMETREXED. [Suspect]
     Active Substance: PEMETREXED
     Dates: start: 20181004, end: 20190131

REACTIONS (4)
  - Leukopenia [None]
  - Neutropenia [None]
  - Thrombocytopenia [None]
  - Urinary tract infection [None]

NARRATIVE: CASE EVENT DATE: 20190208
